FAERS Safety Report 14729178 (Version 2)
Quarter: 2019Q2

REPORT INFORMATION
  Report Type: Spontaneous
  Country: US (occurrence: US)
  Receive Date: 20180406
  Receipt Date: 20190402
  Transmission Date: 20190711
  Serious: Yes (Other)
  Sender: FDA-Public Use
  Company Number: US-ASTRAZENECA-2018SE40891

PATIENT
  Age: 27121 Day
  Sex: Female

DRUGS (21)
  1. PRILOSEC OTC [Suspect]
     Active Substance: OMEPRAZOLE MAGNESIUM
     Route: 048
     Dates: start: 200301, end: 201701
  2. RANITIDINE. [Concomitant]
     Active Substance: RANITIDINE
  3. SIMVASTATIN. [Concomitant]
     Active Substance: SIMVASTATIN
  4. PRILOSEC [Suspect]
     Active Substance: OMEPRAZOLE MAGNESIUM
     Dosage: GENERIC
     Route: 048
  5. HYDROCODONE [Concomitant]
     Active Substance: HYDROCODONE
  6. NEXIUM [Suspect]
     Active Substance: ESOMEPRAZOLE MAGNESIUM
     Route: 048
     Dates: start: 200301, end: 201701
  7. PREVACID [Suspect]
     Active Substance: LANSOPRAZOLE
     Route: 065
     Dates: start: 200301, end: 201701
  8. CEPHALEXIN. [Concomitant]
     Active Substance: CEPHALEXIN
  9. PROTONIX [Suspect]
     Active Substance: PANTOPRAZOLE SODIUM
     Route: 065
     Dates: start: 200301, end: 201701
  10. CIPROFLOXACIN. [Concomitant]
     Active Substance: CIPROFLOXACIN
  11. LOSARTAN. [Concomitant]
     Active Substance: LOSARTAN
  12. GABAPENTIN. [Concomitant]
     Active Substance: GABAPENTIN
  13. NEXIUM 24HR [Suspect]
     Active Substance: ESOMEPRAZOLE MAGNESIUM
     Route: 048
     Dates: start: 200301, end: 201701
  14. DEXILANT [Suspect]
     Active Substance: DEXLANSOPRAZOLE
     Route: 065
     Dates: start: 200301, end: 201701
  15. PROGESTERONE. [Concomitant]
     Active Substance: PROGESTERONE
  16. ATENOLOL. [Concomitant]
     Active Substance: ATENOLOL
  17. AZITHROMYCIN ANHYDROUS. [Concomitant]
     Active Substance: AZITHROMYCIN ANHYDROUS
  18. PRILOSEC [Suspect]
     Active Substance: OMEPRAZOLE MAGNESIUM
     Route: 048
     Dates: start: 200301, end: 201701
  19. PREVACID 24 HR [Suspect]
     Active Substance: LANSOPRAZOLE
     Route: 065
     Dates: start: 200301, end: 201701
  20. OXYCODONE [Concomitant]
     Active Substance: OXYCODONE
  21. WARFARIN [Concomitant]
     Active Substance: WARFARIN

REACTIONS (2)
  - Chronic kidney disease [Unknown]
  - Renal injury [Unknown]

NARRATIVE: CASE EVENT DATE: 20140905
